FAERS Safety Report 6158591-9 (Version None)
Quarter: 2009Q2

REPORT INFORMATION
  Report Type: 
  Country: None (occurrence: None)
  Receive Date: 20090415
  Receipt Date: 20090402
  Transmission Date: 20091009
  Serious: Yes (Other)
  Sender: FDA-Public Use
  Company Number: CAR-2009-008

PATIENT
  Age: 76 Year
  Sex: Female

DRUGS (3)
  1. CARAFATE [Suspect]
     Dosage: 10 ML TID ORAL
     Route: 048
     Dates: start: 20081001
  2. NASONEX (MOMETASONE FUROATE MONOHYDRATE) [Concomitant]
  3. FOLIC ACID [Concomitant]

REACTIONS (2)
  - AMYOTROPHIC LATERAL SCLEROSIS [None]
  - APHASIA [None]
